FAERS Safety Report 7321829-6 (Version None)
Quarter: 2011Q1

REPORT INFORMATION
  Report Type: 
  Country: None (occurrence: None)
  Receive Date: 20110228
  Receipt Date: 20110215
  Transmission Date: 20110831
  Serious: Yes (Other)
  Sender: FDA-Public Use
  Company Number: PHHY2011GB12205

PATIENT
  Sex: Male
  Weight: 63 kg

DRUGS (6)
  1. SIMVASTATIN [Concomitant]
     Dosage: UNK
     Dates: start: 20100909, end: 20101109
  2. LIPITOR [Concomitant]
  3. TRIMETHOPRIM [Concomitant]
     Dosage: UNK
     Dates: start: 20100909, end: 20101109
  4. DOXYCYCLINE [Suspect]
     Dosage: UNK
     Dates: start: 20110208
  5. LISINOPRIL [Concomitant]
  6. MINOXIDIL [Concomitant]

REACTIONS (3)
  - PRURITUS [None]
  - RASH [None]
  - AMOEBIC DYSENTERY [None]
